FAERS Safety Report 11097284 (Version 1)
Quarter: 2015Q2

REPORT INFORMATION
  Report Type: Spontaneous
  Country: US (occurrence: None)
  Receive Date: 20150506
  Receipt Date: 20150506
  Transmission Date: 20150821
  Serious: No
  Sender: FDA-Public Use
  Company Number: None

PATIENT
  Age: 63 Year
  Sex: Male

DRUGS (2)
  1. SOVALDI [Suspect]
     Active Substance: SOFOSBUVIR
     Indication: CHRONIC HEPATITIS C
     Route: 048
     Dates: start: 20150411
  2. RIBAVIRIN 200MG TAB ZYDUS PHARMACEUTICALS [Suspect]
     Active Substance: RIBAVIRIN
     Indication: CHRONIC HEPATITIS C
     Dosage: 400 QAM
     Route: 048
     Dates: start: 20150411

REACTIONS (5)
  - Fatigue [None]
  - Headache [None]
  - Pruritus [None]
  - Rash [None]
  - Photosensitivity reaction [None]

NARRATIVE: CASE EVENT DATE: 201504
